FAERS Safety Report 9244974 (Version 2)
Quarter: 2014Q1

REPORT INFORMATION
  Report Type: Spontaneous
  Country: US (occurrence: None)
  Receive Date: 20121130
  Receipt Date: 20131206
  Transmission Date: 20141002
  Serious: Yes (Hospitalization)
  Sender: FDA-Public Use
  Company Number: 361157

PATIENT
  Age: 22 Year
  Sex: Female
  Weight: 89.5 kg

DRUGS (3)
  1. NOVOLOG [Suspect]
     Indication: TYPE 1 DIABETES MELLITUS
     Dosage: UNK, SUBCUTAN.-PUMP?
     Route: 058
     Dates: start: 20120921
  2. AZITHROMYCIN (AZITHROMYCIN) [Concomitant]
  3. SYNTHROID (LEVOTHYROXINE SODIUM) [Concomitant]

REACTIONS (3)
  - Drug ineffective [None]
  - Diabetic ketoacidosis [None]
  - Liquid product physical issue [None]
